FAERS Safety Report 20703045 (Version 1)
Quarter: 2022Q2

REPORT INFORMATION
  Report Type: Spontaneous
  Country: US (occurrence: US)
  Receive Date: 20220413
  Receipt Date: 20220413
  Transmission Date: 20220721
  Serious: Yes (Hospitalization, Congenital Anomaly, Other)
  Sender: FDA-Public Use
  Company Number: US-BRISTOL-MYERS SQUIBB COMPANY-2022-015931

PATIENT
  Age: 65 Year
  Sex: Male
  Weight: 108.86 kg

DRUGS (2)
  1. ELIQUIS [Suspect]
     Active Substance: APIXABAN
     Indication: Thrombosis prophylaxis
     Dosage: DOSE : UNAVAILABLE ( NOT PROVIDED);     FREQ : TWICE A DAY
     Route: 065
     Dates: start: 2016
  2. OMEPRAZOLE [Concomitant]
     Active Substance: OMEPRAZOLE
     Indication: Product used for unknown indication
     Route: 065

REACTIONS (7)
  - Pemphigoid [Unknown]
  - Factor V Leiden mutation [Unknown]
  - Ulcer [Unknown]
  - Gingival bleeding [Unknown]
  - Gingival disorder [Unknown]
  - Pharyngeal lesion [Unknown]
  - Food poisoning [Unknown]

NARRATIVE: CASE EVENT DATE: 20210101
